FAERS Safety Report 7552513-1 (Version None)
Quarter: 2011Q2

REPORT INFORMATION
  Report Type: 
  Country: None (occurrence: None)
  Receive Date: 20110616
  Receipt Date: 20110609
  Transmission Date: 20111010
  Serious: Yes (Death)
  Sender: FDA-Public Use
  Company Number: ES-CELGENEUS-144-C5013-11022191

PATIENT
  Sex: Male

DRUGS (40)
  1. LENALIDOMIDE [Suspect]
     Indication: MULTIPLE MYELOMA
     Dosage: 25 MILLIGRAM
     Route: 048
     Dates: start: 20090625
  2. NEUPOGEN [Concomitant]
     Dosage: 75 MICROGRAM
     Route: 058
     Dates: start: 20100211, end: 20100304
  3. ACETAMINOPHEN [Concomitant]
     Route: 065
     Dates: end: 20100415
  4. BOLK [Concomitant]
     Dosage: 975 MILLIGRAM
     Route: 048
     Dates: start: 20090917
  5. LOPERAMIDE HYDROCHLORIDE [Concomitant]
     Route: 065
     Dates: end: 20100415
  6. HIDROCLOROTIAZIDA [Concomitant]
     Dosage: 12.5 MILLIGRAM
     Route: 048
     Dates: start: 19910101
  7. TRAMADOL HCL [Concomitant]
     Indication: BONE PAIN
     Dosage: 37.5 MILLIGRAM
     Route: 048
     Dates: start: 20090630
  8. ALDACTONE [Concomitant]
     Route: 065
     Dates: end: 20100415
  9. TELMISARTAN [Concomitant]
     Dosage: 40 MILLIGRAM
     Route: 048
     Dates: start: 19910101
  10. DESKETOPROFENO [Concomitant]
     Indication: PAIN
     Dosage: 25 MILLIGRAM
     Route: 048
     Dates: start: 20090917, end: 20090923
  11. DEXAMETHASONE [Suspect]
     Indication: MULTIPLE MYELOMA
     Dosage: 40 MILLIGRAM
     Route: 065
     Dates: start: 20090625
  12. DEXAMETHASONE [Suspect]
     Route: 065
     Dates: end: 20100415
  13. NEUPOGEN [Concomitant]
     Indication: NEUTROPENIA
     Dosage: 100 MICROGRAM
     Route: 058
     Dates: start: 20090820, end: 20090824
  14. NEUPOGEN [Concomitant]
     Dosage: 100 MICROGRAM
     Route: 058
     Dates: start: 20091029, end: 20091216
  15. NEUPOGEN [Concomitant]
     Dosage: 100 MICROGRAM
     Route: 058
     Dates: start: 20100107, end: 20100204
  16. ACETAMINOPHEN [Concomitant]
     Dosage: 1800 MILLIGRAM
     Route: 048
     Dates: start: 20090611, end: 20090630
  17. OMEPRAZOLE [Concomitant]
     Indication: PROPHYLAXIS
     Dosage: 40 MILLIGRAM
     Route: 048
     Dates: start: 19910101
  18. CODEINA [Concomitant]
     Indication: BONE PAIN
     Dosage: 120 MILLIGRAM
     Route: 048
     Dates: start: 20090611, end: 20090630
  19. LEVOFLOXACIN [Concomitant]
     Dosage: 500 MILLIGRAM
     Route: 048
     Dates: start: 20091112, end: 20091112
  20. ACETAMINOPHEN [Concomitant]
     Indication: BONE PAIN
     Dosage: 325 MILLIGRAM
     Route: 048
     Dates: start: 20090630
  21. LOPERAMIDE [Concomitant]
     Dosage: 6 MILLIGRAM
     Route: 048
     Dates: start: 20091004, end: 20091007
  22. LOPERAMIDE [Concomitant]
     Dosage: 6 MILLIGRAM
     Route: 048
     Dates: start: 20091004, end: 20091007
  23. DICLOFENACO [Concomitant]
     Dosage: 50 MILLIGRAM
     Route: 048
     Dates: start: 20091202, end: 20091202
  24. NEUPOGEN [Concomitant]
     Dosage: 100 MICROGRAM
     Route: 058
     Dates: start: 20090910, end: 20090916
  25. BEMIPARINA [Concomitant]
     Indication: THROMBOSIS PROPHYLAXIS
     Dosage: 3500 INTERNATIONAL UNITS MILLIONS
     Route: 058
     Dates: start: 20090625
  26. ETORICOXIB [Concomitant]
     Indication: BONE PAIN
     Dosage: 60 MILLIGRAM
     Route: 048
     Dates: start: 20090630, end: 20090630
  27. FUROSEMIDE [Concomitant]
     Dosage: 80 MILLIGRAM
     Route: 048
     Dates: start: 20090806, end: 20091216
  28. FUROSEMIDE [Concomitant]
     Dosage: 20 MILLIGRAM
     Route: 048
     Dates: start: 20090806, end: 20091217
  29. NEUPOGEN [Concomitant]
     Indication: PROPHYLAXIS
     Dosage: 150 MICROGRAM
     Route: 058
     Dates: start: 20090827, end: 20090909
  30. TRAMADOL HCL [Concomitant]
     Route: 065
     Dates: end: 20100415
  31. MANIDIPINO [Concomitant]
     Dosage: 10 MILLIGRAM
     Route: 048
     Dates: start: 19910101
  32. NEBIVOLOL HCL [Concomitant]
     Dosage: 2.5 MILLIGRAM
     Route: 048
     Dates: start: 19910101
  33. DOXAZOSINA [Concomitant]
     Dosage: 4 MILLIGRAM
     Route: 048
     Dates: start: 19910101
  34. LENALIDOMIDE [Suspect]
     Route: 048
     Dates: end: 20100415
  35. BEMIPARINA [Concomitant]
     Route: 065
     Dates: end: 20100415
  36. BOLK [Concomitant]
     Route: 065
     Dates: end: 20100415
  37. ALDACTONE [Concomitant]
     Dosage: 100 MILLIGRAM
     Route: 048
     Dates: start: 20091217
  38. LOPERAMIDE HYDROCHLORIDE [Concomitant]
     Route: 048
     Dates: start: 20091210
  39. METAMIZOL [Concomitant]
     Indication: BONE PAIN
     Dosage: 2 GRAM
     Route: 048
     Dates: start: 20090611
  40. DICLOFENACO [Concomitant]
     Dosage: 50 MILLIGRAM
     Route: 048
     Dates: start: 20091112, end: 20091115

REACTIONS (1)
  - LUNG ADENOCARCINOMA STAGE III [None]
